FAERS Safety Report 4522606-1 (Version None)
Quarter: 2004Q4

REPORT INFORMATION
  Report Type: 
  Country: None (occurrence: None)
  Receive Date: 20041207
  Receipt Date: 20041124
  Transmission Date: 20050328
  Serious: Yes (Hospitalization)
  Sender: FDA-Public Use
  Company Number: 2004099437

PATIENT
  Age: 64 Year
  Sex: Female

DRUGS (2)
  1. RELPAX [Suspect]
     Indication: HEADACHE
     Dosage: ORAL
     Route: 048
     Dates: end: 20040426
  2. ACETAMINOPHEN [Suspect]
     Indication: HEADACHE
     Dosage: 1 GRAM, ORAL
     Route: 048
     Dates: end: 20040426

REACTIONS (3)
  - DRUG ABUSER [None]
  - MIGRAINE [None]
  - TENSION HEADACHE [None]
